FAERS Safety Report 4938655-5 (Version None)
Quarter: 2006Q1

REPORT INFORMATION
  Report Type: 
  Country: None (occurrence: None)
  Receive Date: 20060127
  Receipt Date: 20051019
  Transmission Date: 20060701
  Serious: Yes (Other)
  Sender: FDA-Public Use
  Company Number: 2005146494

PATIENT
  Age: 60 Year
  Sex: Male
  Weight: 104.3273 kg

DRUGS (13)
  1. LYRICA [Suspect]
     Indication: NEUROPATHY
     Dosage: 150 MG (75 MG,2 IN 1 D),ORAL
     Route: 048
     Dates: start: 20051011
  2. NEURONTIN [Suspect]
     Indication: NEUROPATHY
     Dosage: (NTERVAL: EVERY DAY),ORAL
     Route: 048
     Dates: start: 20050101, end: 20050101
  3. MULTIVITAMIN [Suspect]
     Indication: ILL-DEFINED DISORDER
     Dates: end: 20051017
  4. VITAMIN C (VITAMIN C) [Suspect]
     Indication: ILL-DEFINED DISORDER
     Dosage: (500 MG)
     Dates: end: 20051017
  5. VITAMIN E [Suspect]
     Indication: ILL-DEFINED DISORDER
     Dates: end: 20051017
  6. VITAMIN B (VITAMIN B) [Suspect]
     Indication: ILL-DEFINED DISORDER
     Dates: end: 20051017
  7. GLUCOTROL [Concomitant]
  8. GLUCOPHAGE [Concomitant]
  9. ALL OTHER THERAPEUTIC PRODUCTS (ALL OTHER THERAPEUTIC PRODUCTS) [Concomitant]
  10. ELAVIL [Concomitant]
  11. ULTRAM [Concomitant]
  12. CELEBREX [Concomitant]
  13. ZINC (ZINC) [Concomitant]

REACTIONS (8)
  - AGITATION [None]
  - ANXIETY [None]
  - DISTURBANCE IN ATTENTION [None]
  - DRUG INEFFECTIVE [None]
  - DRUG INTERACTION [None]
  - INSOMNIA [None]
  - PAIN [None]
  - SOMNOLENCE [None]
